FAERS Safety Report 4736735-0 (Version None)
Quarter: 2005Q3

REPORT INFORMATION
  Report Type: 
  Country: None (occurrence: None)
  Receive Date: 20050808
  Receipt Date: 20050718
  Transmission Date: 20060218
  Serious: Yes (Hospitalization)
  Sender: FDA-Public Use
  Company Number: AR-BOEHRINGER INGELHEIM PHARMACEUTICALS, INC.-2005-BP-12034RA

PATIENT
  Sex: Female
  Weight: 42 kg

DRUGS (1)
  1. TIPRANAVIR / RITONAVIR CAPSULES, SOFTGELATIN [Suspect]
     Indication: HIV INFECTION
     Dosage: 1000/400 MG
     Route: 048
     Dates: start: 20030804, end: 20050716

REACTIONS (5)
  - ASTHENIA [None]
  - DEHYDRATION [None]
  - GAIT DISTURBANCE [None]
  - NAUSEA [None]
  - VOMITING [None]
